FAERS Safety Report 8759140 (Version 2)
Quarter: 2013Q4

REPORT INFORMATION
  Report Type: Spontaneous
  Country: US (occurrence: US)
  Receive Date: 20120829
  Receipt Date: 20131018
  Transmission Date: 20140711
  Serious: Yes (Disabling, Other)
  Sender: FDA-Public Use
  Company Number: US-009507513-1208USA009497

PATIENT
  Sex: Female

DRUGS (2)
  1. FOSAMAX [Suspect]
     Dosage: UNK
     Route: 048
     Dates: start: 200509, end: 2008
  2. ALENDRONATE SODIUM [Suspect]
     Dosage: UNK
     Dates: start: 2009, end: 2011

REACTIONS (1)
  - Femur fracture [Unknown]
